FAERS Safety Report 13558783 (Version 2)
Quarter: 2017Q3

REPORT INFORMATION
  Report Type: Report from Study
  Country: None (occurrence: US)
  Receive Date: 20170518
  Receipt Date: 20170822
  Transmission Date: 20171127
  Serious: Yes (Hospitalization, Other)
  Sender: FDA-Public Use
  Company Number: US-ABBVIE-17K-163-1977636-00

PATIENT
  Age: 58 Year
  Sex: Female

DRUGS (1)
  1. HUMIRA [Suspect]
     Active Substance: ADALIMUMAB
     Indication: PSORIATIC ARTHROPATHY
     Route: 058

REACTIONS (2)
  - Streptococcal infection [Recovered/Resolved]
  - Hypoacusis [Recovering/Resolving]

NARRATIVE: CASE EVENT DATE: 201611
